FAERS Safety Report 8521967-6 (Version None)
Quarter: 2012Q3

REPORT INFORMATION
  Report Type: 
  Country: None (occurrence: None)
  Receive Date: 20120719
  Receipt Date: 20120710
  Transmission Date: 20120928
  Serious: Yes (Hospitalization, Other)
  Sender: FDA-Public Use
  Company Number: US-009507513-1203USA00317

PATIENT

DRUGS (31)
  1. FOSAMAX [Suspect]
     Indication: OSTEOPENIA
     Dosage: 70 MG, QW
     Route: 048
     Dates: start: 20040101, end: 20080501
  2. LORATADINE [Concomitant]
     Indication: HYPERSENSITIVITY
     Dosage: 10 MG, UNK
     Route: 048
     Dates: start: 20040101
  3. LYRICA [Concomitant]
     Indication: BACK PAIN
  4. ATENOLOL [Concomitant]
     Indication: HYPERTENSION
  5. NORTRIPTYLINE HCL [Concomitant]
     Indication: FIBROMYALGIA
     Dosage: UNK
     Dates: start: 20020314
  6. ZYRTEC [Concomitant]
     Indication: SINUSITIS
     Dosage: 1 DF, QD
     Route: 048
     Dates: start: 19991119
  7. LOSARTAN POTASSIUM [Concomitant]
     Indication: HYPERTENSION
     Dosage: 75 MG, UNK
  8. PREMPRO [Concomitant]
  9. CYMBALTA [Concomitant]
     Indication: SPINAL COLUMN INJURY
  10. CHONDROITIN [Concomitant]
     Dosage: 400 MG, UNK
     Route: 048
     Dates: start: 19900101
  11. CHONDROITIN [Concomitant]
     Dosage: 500 UNK, UNK
     Route: 048
  12. DEPO-MEDROL [Concomitant]
     Indication: BACK PAIN
  13. IRON (UNSPECIFIED) (+) VITAMINS (UNSPECIFIED) [Concomitant]
  14. CLARITIN [Concomitant]
  15. LYRICA [Concomitant]
     Indication: SPINAL COLUMN INJURY
  16. FOSAMAX [Suspect]
     Indication: OSTEOPOROSIS
  17. CALCIUM (UNSPECIFIED) (+) VITAMIN D (UNSPECIFIED) [Concomitant]
     Dosage: 1200 MG, UNK
     Route: 048
     Dates: start: 19900101
  18. ARTHROTEC [Concomitant]
     Indication: ARTHRITIS
     Dosage: 50200 MG, UNK
     Route: 048
     Dates: start: 19980101
  19. LOTRISONE [Concomitant]
     Indication: VULVOVAGINAL PRURITUS
  20. GARLIC [Concomitant]
  21. TYLENOL [Concomitant]
  22. VITAMINS (UNSPECIFIED) [Concomitant]
     Dosage: 1 DF, QD
     Route: 048
     Dates: start: 20000101
  23. ATENOLOL [Concomitant]
     Indication: MITRAL VALVE PROLAPSE
     Dosage: 25 MG, UNK
     Route: 048
     Dates: start: 19960101
  24. VIOXX [Concomitant]
     Indication: FIBROMYALGIA
     Dosage: UNK MG, QD
     Dates: start: 20020314, end: 20040318
  25. ALESSE [Concomitant]
     Indication: MENOPAUSE
     Dosage: UNK
     Dates: start: 20010501
  26. DARVOCET-N 50 [Concomitant]
  27. CALCIUM (UNSPECIFIED) [Concomitant]
     Indication: OSTEOPOROSIS PROPHYLAXIS
     Dosage: 1000 MG, QD
     Route: 048
  28. ASCORBIC ACID [Concomitant]
  29. NASONEX [Concomitant]
  30. ALENDRONATE SODIUM [Suspect]
     Indication: OSTEOPENIA
     Dosage: 70 MG, UNK
     Route: 048
     Dates: start: 20080501, end: 20110701
  31. CYMBALTA [Concomitant]
     Indication: BACK PAIN

REACTIONS (23)
  - TOOTH EXTRACTION [None]
  - CONSTIPATION [None]
  - DENTURE WEARER [None]
  - NORMOCHROMIC NORMOCYTIC ANAEMIA [None]
  - LOW TURNOVER OSTEOPATHY [None]
  - FRACTURE DELAYED UNION [None]
  - HYPERTENSIVE CARDIOMYOPATHY [None]
  - FEMUR FRACTURE [None]
  - HYPOTENSION [None]
  - MENISCUS LESION [None]
  - BREAST LUMP REMOVAL [None]
  - SENSORY LEVEL ABNORMAL [None]
  - BONE CYST [None]
  - JOINT SWELLING [None]
  - HAEMOGLOBIN DECREASED [None]
  - LIMB ASYMMETRY [None]
  - LEUKOCYTOSIS [None]
  - ARTHRALGIA [None]
  - MYALGIA [None]
  - IMPAIRED HEALING [None]
  - PAIN [None]
  - PAIN IN EXTREMITY [None]
  - ATELECTASIS [None]
